FAERS Safety Report 4493557-6 (Version None)
Quarter: 2004Q4

REPORT INFORMATION
  Report Type: 
  Country: None (occurrence: None)
  Receive Date: 20041103
  Receipt Date: 20041103
  Transmission Date: 20050328
  Serious: Yes (Hospitalization)
  Sender: FDA-Public Use
  Company Number: None

PATIENT
  Age: 53 Year
  Sex: Female
  Weight: 101 kg

DRUGS (2)
  1. ACYCLOVIR 500MG [Suspect]
     Indication: MENINGITIS VIRAL
     Dosage: 2000MG ONCE INTRAVENOU
     Route: 042
     Dates: start: 20040601, end: 20040601
  2. ACYCLOVIR 500MG [Suspect]
     Indication: MENINGITIS VIRAL
     Dosage: 1000MG Q12HX2 DOSES INTRAVENOU
     Route: 042
     Dates: start: 20040602, end: 20040602

REACTIONS (6)
  - CONFUSIONAL STATE [None]
  - DRUG TOXICITY [None]
  - HAEMODIALYSIS [None]
  - MEDICATION ERROR [None]
  - RENAL FAILURE ACUTE [None]
  - RENAL TUBULAR NECROSIS [None]
